FAERS Safety Report 9475740 (Version 1)
Quarter: 2013Q3

REPORT INFORMATION
  Report Type: Spontaneous
  Country: FI (occurrence: FI)
  Receive Date: 20130826
  Receipt Date: 20130826
  Transmission Date: 20140515
  Serious: Yes (Other)
  Sender: FDA-Public Use
  Company Number: FI-AMGEN-FINSP2013058973

PATIENT
  Age: 66 Year
  Sex: Female

DRUGS (8)
  1. NEULASTA [Suspect]
     Indication: OVARIAN CANCER
     Dosage: UNK
     Route: 065
     Dates: start: 20130706
  2. CHEMOTHERAPEUTICS [Concomitant]
     Indication: OVARIAN CANCER
     Dosage: UNK
     Dates: start: 20130705
  3. ATORVASTATIN [Concomitant]
     Dosage: UNK
  4. DIPROSALIC [Concomitant]
     Dosage: UNK
  5. IBUMETIN [Concomitant]
     Dosage: UNK
  6. PARATABS [Concomitant]
     Dosage: UNK
  7. PRIMASPAN [Concomitant]
     Dosage: 100 MG X 1
  8. XANOR [Concomitant]
     Dosage: 0.5 MG X 1

REACTIONS (4)
  - Neutrophil count decreased [Unknown]
  - White blood cell count decreased [Unknown]
  - Platelet count decreased [Unknown]
  - Malaise [Unknown]
